FAERS Safety Report 5406596-5 (Version None)
Quarter: 2007Q3

REPORT INFORMATION
  Report Type: 
  Country: None (occurrence: None)
  Receive Date: 20070806
  Receipt Date: 20070726
  Transmission Date: 20080115
  Serious: Yes (Hospitalization)
  Sender: FDA-Public Use
  Company Number: IT-PFIZER INC-2007062302

PATIENT
  Sex: Female

DRUGS (2)
  1. SOLU-MEDROL [Suspect]
  2. ADRIAMYCIN PFS [Suspect]

REACTIONS (1)
  - LEUKOPENIA [None]
